FAERS Safety Report 23038547 (Version 1)
Quarter: 2023Q4

REPORT INFORMATION
  Report Type: Report from Study
  Country: US (occurrence: US)
  Receive Date: 20231006
  Receipt Date: 20231006
  Transmission Date: 20240109
  Serious: Yes (Hospitalization)
  Sender: FDA-Public Use
  Company Number: US-TAKEDA-2023TUS093733

PATIENT
  Sex: Female

DRUGS (1)
  1. IXAZOMIB [Suspect]
     Active Substance: IXAZOMIB
     Indication: Waldenstrom^s macroglobulinaemia
     Dosage: 4 MILLIGRAM
     Route: 048
     Dates: start: 20230405

REACTIONS (3)
  - Mitral valve repair [Unknown]
  - Urinary tract infection [Unknown]
  - Off label use [Unknown]
